FAERS Safety Report 22536058 (Version 1)
Quarter: 2023Q2

REPORT INFORMATION
  Report Type: Spontaneous
  Country: US (occurrence: None)
  Receive Date: 20230607
  Receipt Date: 20230607
  Transmission Date: 20230721
  Serious: Yes (Hospitalization, Other)
  Sender: FDA-Public Use
  Company Number: None

PATIENT
  Age: 60 Year
  Sex: Female
  Weight: 101.6 kg

DRUGS (13)
  1. LIRAGLUTIDE [Suspect]
     Active Substance: LIRAGLUTIDE
     Indication: Type 2 diabetes mellitus
     Dosage: FREQUENCY : DAILY;?
     Route: 058
  2. Acetaminophen (PRN) [Concomitant]
  3. HEPARIN [Concomitant]
     Active Substance: HEPARIN SODIUM
  4. LAMOTRIGINE [Concomitant]
     Active Substance: LAMOTRIGINE
  5. LISINOPRIL [Concomitant]
     Active Substance: LISINOPRIL
  6. Loperamide (PRN) [Concomitant]
  7. PANTOPRAZOLE [Concomitant]
     Active Substance: PANTOPRAZOLE
  8. MiraLax (PRN) [Concomitant]
  9. SENNA [Concomitant]
     Active Substance: SENNA LEAF\SENNOSIDES\SENNOSIDES A AND B
  10. SIMVASTATIN [Concomitant]
     Active Substance: SIMVASTATIN
  11. TIGAN [Concomitant]
     Active Substance: TRIMETHOBENZAMIDE HYDROCHLORIDE
  12. ZIPRASIDONE [Concomitant]
     Active Substance: ZIPRASIDONE
  13. VELTASSA [Concomitant]
     Active Substance: PATIROMER

REACTIONS (5)
  - Pancreatitis [None]
  - Cholelithiasis [None]
  - Pneumonia [None]
  - Acute respiratory distress syndrome [None]
  - Sepsis [None]

NARRATIVE: CASE EVENT DATE: 20230518
